FAERS Safety Report 17132867 (Version 1)
Quarter: 2019Q4

REPORT INFORMATION
  Report Type: Spontaneous
  Country: BE (occurrence: BE)
  Receive Date: 20191210
  Receipt Date: 20191210
  Transmission Date: 20200122
  Serious: Yes (Life-Threatening)
  Sender: FDA-Public Use
  Company Number: BE-TEVA-2019-BE-1147867

PATIENT
  Age: 9 Year
  Sex: Male
  Weight: 30 kg

DRUGS (2)
  1. IBUPROFEN. [Suspect]
     Active Substance: IBUPROFEN
     Indication: PYREXIA
     Dosage: 30 MG
     Route: 048
     Dates: start: 20190910, end: 20190912
  2. PARACETAMOL [Suspect]
     Active Substance: ACETAMINOPHEN
     Indication: PYREXIA
     Dosage: 60 MG
     Route: 048
     Dates: start: 20190910, end: 20190914

REACTIONS (4)
  - Toxic epidermal necrolysis [Recovering/Resolving]
  - Corneal degeneration [Recovering/Resolving]
  - Respiratory failure [Recovering/Resolving]
  - Stevens-Johnson syndrome [Recovering/Resolving]

NARRATIVE: CASE EVENT DATE: 20190912
